FAERS Safety Report 5568402-8 (Version None)
Quarter: 2007Q4

REPORT INFORMATION
  Report Type: 
  Country: None (occurrence: None)
  Receive Date: 20071220
  Receipt Date: 20071214
  Transmission Date: 20080405
  Serious: Yes (Life-Threatening)
  Sender: FDA-Public Use
  Company Number: PL-WYE-H01726507

PATIENT
  Age: 15 Year
  Sex: Female

DRUGS (3)
  1. PROPRANOLOL [Suspect]
  2. ETHANOL [Suspect]
  3. VERAPAMIL [Suspect]

REACTIONS (2)
  - CARDIOGENIC SHOCK [None]
  - OVERDOSE [None]
